FAERS Safety Report 26079761 (Version 1)
Quarter: 2025Q4

REPORT INFORMATION
  Report Type: Spontaneous
  Country: RS (occurrence: RS)
  Receive Date: 20251123
  Receipt Date: 20251123
  Transmission Date: 20260118
  Serious: Yes (Other)
  Sender: AMGEN
  Company Number: RS-AMGEN-SRBSP2025228634

PATIENT
  Age: 57 Year
  Sex: Female

DRUGS (8)
  1. VECTIBIX [Suspect]
     Active Substance: PANITUMUMAB
     Indication: Gastrointestinal adenocarcinoma
     Dosage: 6 MILLIGRAM/KILOGRAM, Q2WK
     Route: 065
     Dates: start: 202311, end: 202504
  2. IRINOTECAN [Suspect]
     Active Substance: IRINOTECAN
     Indication: Gastrointestinal adenocarcinoma
     Dosage: 180 MILLIGRAM/SQ. METER, Q2WK
     Route: 065
     Dates: start: 202311, end: 202504
  3. LEUCOVORIN [Suspect]
     Active Substance: LEUCOVORIN\LEUCOVORIN CALCIUM
     Indication: Gastrointestinal adenocarcinoma
     Dosage: 400 MILLIGRAM/SQ. METER, Q2WK
     Route: 065
     Dates: start: 202311, end: 202504
  4. FLUOROURACIL [Suspect]
     Active Substance: FLUOROURACIL
     Indication: Gastrointestinal adenocarcinoma
     Dosage: 400 MILLIGRAM/SQ. METER, Q2WK,  FOLLOWED BY CONTINUOUS INFUSION OF 5-FLUOROURACIL 2400 MG/M2
     Route: 040
     Dates: start: 202311, end: 202504
  5. CAPECITABINE [Suspect]
     Active Substance: CAPECITABINE
     Indication: Gastrointestinal adenocarcinoma
     Dosage: 2000 MILLIGRAM/SQ. METER, Q3WK
     Route: 065
  6. CAPECITABINE [Suspect]
     Active Substance: CAPECITABINE
     Dosage: 2000 MILLIGRAM/SQ. METER, Q3WK
     Route: 065
     Dates: start: 202504
  7. OXALIPLATIN [Suspect]
     Active Substance: OXALIPLATIN
     Indication: Gastrointestinal adenocarcinoma
     Dosage: 130 MILLIGRAM/SQ. METER, Q3WK
     Route: 065
  8. OXALIPLATIN [Suspect]
     Active Substance: OXALIPLATIN
     Dosage: 150 MILLIGRAM/SQ. METER, Q3WK
     Route: 065
     Dates: start: 202504

REACTIONS (4)
  - Metastases to liver [Unknown]
  - Gastrointestinal adenocarcinoma [Unknown]
  - Rash [Unknown]
  - Peripheral sensory neuropathy [Unknown]

NARRATIVE: CASE EVENT DATE: 20231101
